FAERS Safety Report 18769960 (Version 1)
Quarter: 2021Q1

REPORT INFORMATION
  Report Type: Spontaneous
  Country: DE (occurrence: DE)
  Receive Date: 20210121
  Receipt Date: 20210121
  Transmission Date: 20210419
  Serious: Yes (Life-Threatening, Hospitalization, Other)
  Sender: FDA-Public Use
  Company Number: DE-TEVA-2021-DE-1871145

PATIENT
  Age: 72 Year
  Sex: Female
  Weight: 58 kg

DRUGS (4)
  1. METHOTREXAT [Interacting]
     Active Substance: METHOTREXATE
     Indication: RHEUMATOID ARTHRITIS
     Dosage: USE FOR MORE THAN 3 YEARS,20MG
     Route: 048
  2. FOLSAURE [Concomitant]
     Active Substance: FOLIC ACID
     Dosage: 5MG
     Route: 048
  3. PREDNISOLON [Concomitant]
     Active Substance: PREDNISOLONE
     Indication: RHEUMATOID ARTHRITIS
     Dosage: 5MG
     Route: 048
  4. INDOMETACIN [Suspect]
     Active Substance: INDOMETHACIN
     Indication: RHEUMATOID ARTHRITIS
     Dosage: 75 MILLIGRAM DAILY;  IF REQUIRED; DURATION OF USE UNKNOWN
     Route: 048

REACTIONS (7)
  - Hypokalaemia [Recovering/Resolving]
  - Fatigue [Unknown]
  - Nasopharyngitis [Unknown]
  - Asthenia [Unknown]
  - Pancytopenia [Recovering/Resolving]
  - Headache [Unknown]
  - Drug interaction [Unknown]

NARRATIVE: CASE EVENT DATE: 2020
